FAERS Safety Report 8885730 (Version 2)
Quarter: 2014Q2

REPORT INFORMATION
  Report Type: Spontaneous
  Country: US (occurrence: US)
  Receive Date: 20121101
  Receipt Date: 20131024
  Transmission Date: 20141212
  Serious: No
  Sender: FDA-Public Use
  Company Number: US-PFIZER INC-2012268330

PATIENT
  Sex: 0

DRUGS (3)
  1. LIDOCAINE HCL [Suspect]
     Dosage: UNK
  2. EPINEPHRINE [Suspect]
     Dosage: UNK
  3. EES [Suspect]
     Dosage: UNK

REACTIONS (1)
  - Drug hypersensitivity [Unknown]
